FAERS Safety Report 8027009-3 (Version None)
Quarter: 2012Q1

REPORT INFORMATION
  Report Type: 
  Country: None (occurrence: None)
  Receive Date: 20120106
  Receipt Date: 20111228
  Transmission Date: 20120608
  Serious: Yes (Other)
  Sender: FDA-Public Use
  Company Number: US-BAYER-2011-045224

PATIENT
  Age: 32 Year
  Sex: Female
  Weight: 122.45 kg

DRUGS (7)
  1. IBUPROFEN [Concomitant]
  2. DROSPIRENONE AND ETHINYL ESTRADIOL [Suspect]
     Indication: MENSTRUAL CYCLE MANAGEMENT
     Dosage: UNK
     Dates: start: 20060101, end: 20090801
  3. CALCIUM CARBONATE [Concomitant]
     Indication: DYSPEPSIA
     Dosage: UNK
     Dates: start: 20050101, end: 20100101
  4. PREVACID [Concomitant]
     Indication: GASTROOESOPHAGEAL REFLUX DISEASE
     Dosage: 30 MG, UNK
     Dates: start: 20090423
  5. ZITHROMAX [Concomitant]
  6. PRILOSEC [Concomitant]
     Indication: DYSPEPSIA
     Dosage: UNK
     Dates: start: 20090301, end: 20090601
  7. YASMIN [Suspect]
     Indication: MENSTRUAL CYCLE MANAGEMENT
     Dosage: UNK
     Dates: start: 20060101, end: 20090801

REACTIONS (14)
  - TRANSVERSE SINUS THROMBOSIS [None]
  - GALLBLADDER DISORDER [None]
  - CHOLECYSTITIS CHRONIC [None]
  - PAIN [None]
  - POST CHOLECYSTECTOMY SYNDROME [None]
  - VENOUS INJURY [None]
  - PSYCHOLOGICAL TRAUMA [None]
  - INJURY [None]
  - ANXIETY [None]
  - GASTROINTESTINAL DISORDER [None]
  - SUPERIOR SAGITTAL SINUS THROMBOSIS [None]
  - GALLBLADDER PAIN [None]
  - FEAR [None]
  - ANHEDONIA [None]
